FAERS Safety Report 5317536-1 (Version None)
Quarter: 2007Q2

REPORT INFORMATION
  Report Type: 
  Country: None (occurrence: None)
  Receive Date: 20070507
  Receipt Date: 20070424
  Transmission Date: 20071010
  Serious: Yes (Other)
  Sender: FDA-Public Use
  Company Number: PHEH2007US04719

PATIENT
  Age: 35 Year
  Sex: Female

DRUGS (4)
  1. ZELNORM [Suspect]
     Indication: IMPAIRED GASTRIC EMPTYING
     Dosage: 6 MG, BID
     Dates: start: 20050101, end: 20070403
  2. LIDOCAINE [Concomitant]
  3. PREVACID [Concomitant]
  4. REGLAN [Concomitant]

REACTIONS (26)
  - ABDOMINAL PAIN [None]
  - ANAL DISCOMFORT [None]
  - BACK PAIN [None]
  - BED REST [None]
  - CHEST DISCOMFORT [None]
  - CHEST PAIN [None]
  - CONDITION AGGRAVATED [None]
  - CONSTIPATION [None]
  - DYSPNOEA [None]
  - EXERCISE TOLERANCE DECREASED [None]
  - GASTROOESOPHAGEAL REFLUX DISEASE [None]
  - HAEMATOCHEZIA [None]
  - HERPES SIMPLEX [None]
  - HYPERHIDROSIS [None]
  - IMPAIRED GASTRIC EMPTYING [None]
  - INSOMNIA [None]
  - MUSCLE SPASMS [None]
  - NERVE INJURY [None]
  - OESOPHAGEAL PAIN [None]
  - PAIN [None]
  - PERIPHERAL COLDNESS [None]
  - PRODUCTIVE COUGH [None]
  - RASH GENERALISED [None]
  - TEMPERATURE INTOLERANCE [None]
  - VOMITING [None]
  - WEIGHT DECREASED [None]
